FAERS Safety Report 9158613 (Version 5)
Quarter: 2014Q2

REPORT INFORMATION
  Report Type: Report from Study
  Country: US (occurrence: US)
  Receive Date: 20130312
  Receipt Date: 20140523
  Transmission Date: 20141212
  Serious: Yes (Other)
  Sender: FDA-Public Use
  Company Number: US-PFIZER INC-2013083344

PATIENT
  Age: 54 Year
  Sex: Female

DRUGS (7)
  1. TEMSIROLIMUS [Suspect]
     Indication: BREAST CANCER METASTATIC
     Dosage: 8 MG, WEEKLY
     Route: 042
     Dates: start: 20130130, end: 20130220
  2. NERATINIB [Suspect]
     Indication: BREAST CANCER METASTATIC
     Dosage: 240 MG, DAILY
     Route: 048
     Dates: start: 20130130, end: 20130212
  3. NERATINIB [Suspect]
     Dosage: 160 MG, DAILY
     Route: 048
     Dates: start: 20130221, end: 20130224
  4. NEXIUM [Concomitant]
     Dosage: UNK
     Dates: start: 201208, end: 20130426
  5. LORAZEPAM [Concomitant]
     Dosage: UNK
     Dates: start: 201212, end: 20130426
  6. ZOFRAN [Concomitant]
     Dosage: UNK
     Dates: start: 201212, end: 20130426
  7. ENOXAPARIN SODIUM [Concomitant]
     Dosage: UNK
     Dates: start: 20121202, end: 20130426

REACTIONS (2)
  - Polycythaemia [Recovered/Resolved]
  - Haemoglobin increased [Recovered/Resolved]
